FAERS Safety Report 16939010 (Version 2)
Quarter: 2019Q4

REPORT INFORMATION
  Report Type: Report from Study
  Country: EG (occurrence: EG)
  Receive Date: 20191020
  Receipt Date: 20191030
  Transmission Date: 20200122
  Serious: Yes (Other)
  Sender: FDA-Public Use
  Company Number: NVSC2019EG006092

PATIENT
  Sex: Male

DRUGS (6)
  1. GLIVEC [Suspect]
     Active Substance: IMATINIB MESYLATE
     Dosage: 100 OT
     Route: 048
     Dates: start: 2015
  2. DIAMICRON MR [Concomitant]
     Active Substance: GLICLAZIDE
     Indication: DIABETES MELLITUS
     Dosage: 60 MG, 2 TABLETS BEFORE BREAKFAST
     Route: 065
     Dates: start: 2009
  3. GLIVEC [Suspect]
     Active Substance: IMATINIB MESYLATE
     Indication: CHRONIC MYELOID LEUKAEMIA
     Dosage: 100 OT
     Route: 048
     Dates: start: 2014
  4. CIDOPHAGE [Concomitant]
     Indication: DIABETES MELLITUS
     Dosage: 500 MG, 1 TABLET IN THE MORNING AND 1 TABLET AT THE EVENING
     Route: 065
     Dates: start: 2009
  5. TASIGNA [Suspect]
     Active Substance: NILOTINIB
     Dosage: 200 OT, 800 MG/DAY
     Route: 048
     Dates: start: 2016
  6. TASIGNA [Suspect]
     Active Substance: NILOTINIB
     Indication: CHRONIC MYELOID LEUKAEMIA
     Dosage: 200 OT, 800 MG/DAY
     Route: 048
     Dates: start: 2015

REACTIONS (6)
  - Cytogenetic analysis abnormal [Not Recovered/Not Resolved]
  - Vomiting [Recovered/Resolved]
  - Abdominal pain upper [Recovered/Resolved]
  - Drug ineffective [Not Recovered/Not Resolved]
  - Acne [Recovered/Resolved]
  - Peritonitis [Recovered/Resolved]

NARRATIVE: CASE EVENT DATE: 2014
